FAERS Safety Report 25797937 (Version 1)
Quarter: 2025Q3

REPORT INFORMATION
  Report Type: Spontaneous
  Country: ZA (occurrence: None)
  Receive Date: 20250912
  Receipt Date: 20250912
  Transmission Date: 20251020
  Serious: Yes (Disabling)
  Sender: FDA-CTU
  Company Number: None

PATIENT
  Age: 33 Year
  Sex: Female
  Weight: 94 kg

DRUGS (7)
  1. UNSPECIFIED INGREDIENT [Suspect]
     Active Substance: UNSPECIFIED INGREDIENT
     Indication: Major depression
     Route: 048
     Dates: start: 20030505
  2. Ruby (Contraceptive) [Concomitant]
  3. EUTHYROX [Concomitant]
     Active Substance: LEVOTHYROXINE SODIUM
  4. Wellbutrin 300mg [Concomitant]
  5. Venlafaxine 225 mg [Concomitant]
  6. VYVANSE [Concomitant]
     Active Substance: LISDEXAMFETAMINE DIMESYLATE
  7. VITAMINS [Concomitant]
     Active Substance: VITAMINS

REACTIONS (3)
  - Sexual dysfunction [None]
  - Psychiatric symptom [None]
  - Anxiety [None]

NARRATIVE: CASE EVENT DATE: 20080814
